FAERS Safety Report 6140815-5 (Version None)
Quarter: 2009Q1

REPORT INFORMATION
  Report Type: 
  Country: None (occurrence: None)
  Receive Date: 20090331
  Receipt Date: 20090318
  Transmission Date: 20090719
  Serious: Yes (Hospitalization)
  Sender: FDA-Public Use
  Company Number: 2009-193429-NL

PATIENT
  Age: 13 Year
  Sex: Female

DRUGS (2)
  1. DEXAMETHASONE [Suspect]
     Indication: ASTHMA
     Dosage: DF
  2. AMINOPHYLLINE [Suspect]
     Dosage: DF

REACTIONS (2)
  - DYSSTASIA [None]
  - HYPOAESTHESIA [None]
